FAERS Safety Report 6410337-2 (Version None)
Quarter: 2009Q4

REPORT INFORMATION
  Report Type: 
  Country: None (occurrence: None)
  Receive Date: 20091022
  Receipt Date: 20091014
  Transmission Date: 20100525
  Serious: Yes (Disabling, Other)
  Sender: FDA-Public Use
  Company Number: DE-ASTRAZENECA-2009SE11214

PATIENT
  Age: 22537 Day
  Sex: Female
  Weight: 63 kg

DRUGS (5)
  1. CRESTOR [Suspect]
     Indication: HYPERCHOLESTEROLAEMIA
     Route: 048
     Dates: start: 20090501, end: 20090814
  2. CONCOR COR [Concomitant]
     Indication: HYPERTENSION
     Route: 048
     Dates: start: 20090101
  3. AMLODIPINE [Concomitant]
     Indication: HYPERTENSION
     Route: 048
     Dates: start: 20090101
  4. ASPIRIN [Concomitant]
     Indication: CEREBRAL INFARCTION
     Route: 048
     Dates: start: 20090101
  5. CITALOPRAM HYDROBROMIDE [Concomitant]
     Indication: DEPRESSION
     Route: 048

REACTIONS (3)
  - HEMIPARESIS [None]
  - NERVE ROOT COMPRESSION [None]
  - SCIATICA [None]
